FAERS Safety Report 5706920-X (Version None)
Quarter: 2008Q2

REPORT INFORMATION
  Report Type: 
  Country: None (occurrence: None)
  Receive Date: 20080416
  Receipt Date: 20080409
  Transmission Date: 20081010
  Serious: Yes (Other)
  Sender: FDA-Public Use
  Company Number: JP-AVENTIS-200811189JP

PATIENT
  Age: 31 Year
  Sex: Female

DRUGS (3)
  1. LANTUS [Suspect]
     Dates: start: 20040601
  2. ULTRA-RAPID ACTING INSULIN [Concomitant]
     Dates: start: 20041201
  3. CANDESARTAN CILEXETIL [Concomitant]
     Indication: HYPERTENSION
     Dates: start: 20051201

REACTIONS (2)
  - ABORTION SPONTANEOUS [None]
  - DRUG EXPOSURE DURING PREGNANCY [None]
